FAERS Safety Report 14618487 (Version 1)
Quarter: 2018Q1

REPORT INFORMATION
  Report Type: Spontaneous
  Country: GB (occurrence: NL)
  Receive Date: 20180309
  Receipt Date: 20180309
  Transmission Date: 20180509
  Serious: Yes (Death, Hospitalization, Disabling, Other)
  Sender: FDA-Public Use
  Company Number: NL-FRESENIUS KABI-FK201802389

PATIENT
  Sex: Male

DRUGS (5)
  1. OXALIPLATIN (MANUFACTURER UNKNOWN) [Suspect]
     Active Substance: OXALIPLATIN
     Indication: COLON CANCER
     Route: 042
     Dates: start: 20151109, end: 20160101
  2. FOLINIC ACID [Suspect]
     Active Substance: LEUCOVORIN
     Indication: COLON CANCER
     Route: 042
     Dates: start: 20151109, end: 20160621
  3. OXYCONTIN [Concomitant]
     Active Substance: OXYCODONE HYDROCHLORIDE
     Indication: PAIN
  4. FLUOROURACIL. [Suspect]
     Active Substance: FLUOROURACIL
     Indication: COLON CANCER
     Route: 042
     Dates: start: 20151109, end: 20160621
  5. OXYCODON [Concomitant]
     Active Substance: OXYCODONE
     Indication: PAIN

REACTIONS (13)
  - Paraesthesia [Recovered/Resolved]
  - Dysphagia [Recovered/Resolved]
  - White blood cell disorder [Unknown]
  - Platelet disorder [Unknown]
  - Vomiting [Recovered/Resolved]
  - Malaise [Recovered/Resolved]
  - Nausea [Recovered/Resolved]
  - Bedridden [Recovered/Resolved]
  - Asthenia [Recovered/Resolved]
  - Metastasis [Fatal]
  - Sensation of foreign body [Recovered/Resolved]
  - Dyspepsia [Recovered/Resolved]
  - Paraesthesia oral [Recovered/Resolved]

NARRATIVE: CASE EVENT DATE: 20150101
